FAERS Safety Report 15347320 (Version 1)
Quarter: 2018Q3

REPORT INFORMATION
  Report Type: Report from Study
  Country: US (occurrence: US)
  Receive Date: 20180904
  Receipt Date: 20180904
  Transmission Date: 20181010
  Serious: Yes (Hospitalization, Other)
  Sender: FDA-Public Use
  Company Number: US-GILEAD-2018-0361295

PATIENT
  Age: 40 Year
  Sex: Female

DRUGS (3)
  1. ELIQUIS [Concomitant]
     Active Substance: APIXABAN
  2. ORENITRAM [Concomitant]
     Active Substance: TREPROSTINIL
  3. AMBRISENTAN [Suspect]
     Active Substance: AMBRISENTAN
     Indication: PRODUCT USED FOR UNKNOWN INDICATION
     Dosage: 10 MG, QD
     Route: 065
     Dates: start: 20130123

REACTIONS (3)
  - Deep vein thrombosis [Unknown]
  - Swelling [Unknown]
  - Peripheral swelling [Unknown]
